FAERS Safety Report 15208238 (Version 1)
Quarter: 2018Q3

REPORT INFORMATION
  Report Type: Spontaneous
  Country: GB (occurrence: GB)
  Receive Date: 20180727
  Receipt Date: 20180727
  Transmission Date: 20181010
  Serious: Yes (Other)
  Sender: FDA-Public Use
  Company Number: GB-ASTRAZENECA-2018SE93851

PATIENT
  Age: 77 Year
  Sex: Male
  Weight: 66 kg

DRUGS (9)
  1. VISCOTEARS [Concomitant]
     Active Substance: CARBOMER
  2. LOSARTAN POTASSIUM. [Concomitant]
     Active Substance: LOSARTAN POTASSIUM
  3. ATORVASTATIN [Concomitant]
     Active Substance: ATORVASTATIN
  4. GAVISCON [Concomitant]
     Active Substance: ALUMINUM HYDROXIDE\MAGNESIUM CARBONATE
     Dosage: ONLY OCCASIONAL
  5. AZELASTINE HYDROCHLORIDE. [Concomitant]
     Active Substance: AZELASTINE HYDROCHLORIDE
  6. NEXIUM [Suspect]
     Active Substance: ESOMEPRAZOLE MAGNESIUM
     Route: 048
  7. ALENDRONIC ACID [Concomitant]
     Active Substance: ALENDRONIC ACID
  8. FLUCLOXACILLIN SODIUM [Suspect]
     Active Substance: FLUCLOXACILLIN
     Indication: INFECTED CYST
     Route: 048
     Dates: start: 20180702
  9. FELODIPINE. [Concomitant]
     Active Substance: FELODIPINE

REACTIONS (4)
  - Rhinorrhoea [Unknown]
  - Condition aggravated [Unknown]
  - Inhibitory drug interaction [Unknown]
  - Gastrooesophageal reflux disease [Not Recovered/Not Resolved]

NARRATIVE: CASE EVENT DATE: 20180702
